FAERS Safety Report 25611125 (Version 3)
Quarter: 2025Q3

REPORT INFORMATION
  Report Type: Spontaneous
  Country: EU (occurrence: EU)
  Receive Date: 20250728
  Receipt Date: 20250903
  Transmission Date: 20251021
  Serious: Yes (Other)
  Sender: AUROBINDO
  Company Number: EU-CHEPLA-2025008605

PATIENT
  Age: 35 Year
  Sex: Female

DRUGS (7)
  1. OLANZAPINE [Suspect]
     Active Substance: OLANZAPINE
     Indication: Mixed anxiety and depressive disorder
     Route: 065
  2. OLANZAPINE [Suspect]
     Active Substance: OLANZAPINE
     Indication: Depression
  3. OLANZAPINE [Suspect]
     Active Substance: OLANZAPINE
     Indication: Mental disorder
  4. CIPRALEX [Suspect]
     Active Substance: ESCITALOPRAM OXALATE
     Indication: Mixed anxiety and depressive disorder
     Route: 065
     Dates: end: 2024
  5. CIPRALEX [Suspect]
     Active Substance: ESCITALOPRAM OXALATE
     Indication: Depression
  6. CIPRALEX [Suspect]
     Active Substance: ESCITALOPRAM OXALATE
     Indication: Mental disorder
  7. CIPRALEX [Concomitant]
     Active Substance: ESCITALOPRAM OXALATE
     Indication: Mental disorder
     Route: 065

REACTIONS (12)
  - Fungal oesophagitis [Unknown]
  - Inflammatory bowel disease [Unknown]
  - Weight increased [Unknown]
  - Gastrointestinal microorganism overgrowth [Unknown]
  - Vitamin D deficiency [Unknown]
  - Chronic gastritis [Unknown]
  - Osteopenia [Unknown]
  - Weight decreased [Unknown]
  - Food intolerance [Unknown]
  - Amenorrhoea [Unknown]
  - Metabolic disorder [Unknown]
  - Abnormal weight gain [Recovered/Resolved]

NARRATIVE: CASE EVENT DATE: 20220101
